FAERS Safety Report 25315130 (Version 2)
Quarter: 2025Q3

REPORT INFORMATION
  Report Type: Spontaneous
  Country: US (occurrence: US)
  Receive Date: 20250514
  Receipt Date: 20250825
  Transmission Date: 20251020
  Serious: No
  Sender: SANOFI AVENTIS
  Company Number: US-SA-2025SA137414

PATIENT
  Age: 78 Year
  Sex: Male

DRUGS (10)
  1. DUPIXENT [Suspect]
     Active Substance: DUPILUMAB
     Indication: Type 1 diabetes mellitus
     Dosage: 300 MG, QOW
     Route: 058
     Dates: start: 20240501
  2. TRESIBA [Concomitant]
     Active Substance: INSULIN DEGLUDEC
  3. OMEPRAZOLE [Concomitant]
     Active Substance: OMEPRAZOLE
  4. MOUNJARO [Concomitant]
     Active Substance: TIRZEPATIDE
  5. METOPROLOL [Concomitant]
     Active Substance: METOPROLOL
  6. FARXIGA [Concomitant]
     Active Substance: DAPAGLIFLOZIN PROPANEDIOL
  7. ATORVASTATIN [Concomitant]
     Active Substance: ATORVASTATIN
  8. AMLODIPINE [Concomitant]
     Active Substance: AMLODIPINE BESYLATE
  9. TRELEGY ELLIPTA [Concomitant]
     Active Substance: FLUTICASONE FUROATE\UMECLIDINIUM BROMIDE\VILANTEROL TRIFENATATE
  10. BENAZEPRIL [Concomitant]
     Active Substance: BENAZEPRIL HYDROCHLORIDE

REACTIONS (1)
  - Product use in unapproved indication [Unknown]

NARRATIVE: CASE EVENT DATE: 20240501
